FAERS Safety Report 8797460 (Version 1)
Quarter: 2012Q4

REPORT INFORMATION
  Report Type: 
  Country: US (occurrence: US)
  Receive Date: 20120919
  Receipt Date: 20120919
  Transmission Date: 20130627
  Serious: Yes (Hospitalization)
  Sender: FDA-Public Use
  Company Number: US-009507513-1209USA005743

PATIENT
  Age: 14 Year
  Sex: Male

DRUGS (14)
  1. SAPHRIS [Suspect]
     Route: 060
  2. AFINITOR [Suspect]
     Dosage: 10 mg, qd
     Route: 048
  3. AFINITOR [Suspect]
     Dosage: 5 mg, qd
     Route: 048
  4. AFINITOR [Suspect]
     Dosage: 12.5 mg, qd
     Route: 048
  5. AFINITOR [Suspect]
     Dosage: 20 mg, Once
     Route: 048
  6. TRILEPTAL [Suspect]
  7. SABRIL [Suspect]
  8. LITHIUM [Concomitant]
  9. CHOLECALCIFEROL [Concomitant]
  10. MELATONIN [Concomitant]
  11. CLINDAMYCIN [Concomitant]
  12. CEFDINIR [Concomitant]
  13. MIDAZOLAM [Concomitant]
  14. DIASTAT (DIAZEPAM) [Concomitant]

REACTIONS (8)
  - Pneumonia [Unknown]
  - Emotional disorder [Unknown]
  - Drug level below therapeutic [Unknown]
  - White blood cell count increased [Unknown]
  - Pyrexia [Unknown]
  - Cough [Unknown]
  - Decreased appetite [Unknown]
  - Nasopharyngitis [Unknown]
